FAERS Safety Report 18821877 (Version 1)
Quarter: 2021Q1

REPORT INFORMATION
  Report Type: Spontaneous
  Country: US (occurrence: US)
  Receive Date: 20210201
  Receipt Date: 20210201
  Transmission Date: 20210419
  Serious: Yes (Life-Threatening)
  Sender: FDA-Public Use
  Company Number: None

PATIENT
  Age: 65 Year
  Sex: Male
  Weight: 160 kg

DRUGS (1)
  1. WARFARIN (WARFARIN NA (EXELAN) 4MG TAB) [Suspect]
     Active Substance: WARFARIN SODIUM
     Indication: ATRIAL FIBRILLATION
     Route: 048
     Dates: start: 20190326

REACTIONS (9)
  - Haemorrhage [None]
  - International normalised ratio increased [None]
  - Dyspnoea [None]
  - Subdural haematoma [None]
  - Confusional state [None]
  - Seizure [None]
  - Respiratory distress [None]
  - Haemorrhage intracranial [None]
  - Cardio-respiratory arrest [None]

NARRATIVE: CASE EVENT DATE: 20210123
